FAERS Safety Report 20218695 (Version 1)
Quarter: 2021Q4

REPORT INFORMATION
  Report Type: Report from Study
  Country: CA (occurrence: CA)
  Receive Date: 20211222
  Receipt Date: 20211222
  Transmission Date: 20220303
  Serious: Yes (Other)
  Sender: FDA-Public Use
  Company Number: CA-JNJFOC-20211235274

PATIENT
  Age: 12 Year
  Sex: Female
  Weight: 46.5 kg

DRUGS (1)
  1. REMICADE [Suspect]
     Active Substance: INFLIXIMAB
     Indication: Crohn^s disease
     Dosage: ON 15-DEC-2021 THE PATIENT RECEIVED 80TH LATEST INFUSION.
     Route: 042
     Dates: start: 20150210

REACTIONS (2)
  - Melaena [Recovered/Resolved]
  - Omphalitis [Unknown]

NARRATIVE: CASE EVENT DATE: 20211114
